FAERS Safety Report 9016184 (Version 1)
Quarter: 2013Q1

REPORT INFORMATION
  Report Type: Spontaneous
  Country: US (occurrence: US)
  Receive Date: 20130116
  Receipt Date: 20130116
  Transmission Date: 20140127
  Serious: Yes (Hospitalization)
  Sender: FDA-Public Use
  Company Number: US-009507513-1301XAA004068

PATIENT
  Age: 45 Year
  Sex: Female

DRUGS (9)
  1. SINGULAIR [Suspect]
  2. VENTOLIN (ALBUTEROL) [Suspect]
  3. XYZAL [Suspect]
  4. PRAZEPAM [Suspect]
     Route: 048
  5. ANAFRANIL [Suspect]
     Route: 048
  6. ATARAX (ALPRAZOLAM) [Suspect]
     Route: 048
  7. ATHYMIL [Suspect]
     Route: 048
  8. TEGRETOL [Suspect]
     Dosage: REDUCED DOSE
     Route: 048
  9. CLONAZEPAM [Suspect]
     Route: 048

REACTIONS (1)
  - Hepatitis [Unknown]
